FAERS Safety Report 7006344-1 (Version None)
Quarter: 2010Q3

REPORT INFORMATION
  Report Type: 
  Country: None (occurrence: None)
  Receive Date: 20100921
  Receipt Date: 20100913
  Transmission Date: 20110219
  Serious: Yes (Death, Hospitalization, Other)
  Sender: FDA-Public Use
  Company Number: CA-ABBOTT-10P-028-0665994-00

PATIENT
  Sex: Male

DRUGS (1)
  1. LUPRON DEPOT [Suspect]
     Indication: PROSTATE CANCER
     Dates: start: 20050527, end: 20100511

REACTIONS (4)
  - ANAEMIA [None]
  - LUNG DISORDER [None]
  - MALIGNANT NEOPLASM PROGRESSION [None]
  - PAIN [None]
